FAERS Safety Report 7772711-1 (Version None)
Quarter: 2011Q3

REPORT INFORMATION
  Report Type: 
  Country: None (occurrence: None)
  Receive Date: 20110922
  Receipt Date: 20100311
  Transmission Date: 20111222
  Serious: No
  Sender: FDA-Public Use
  Company Number: US-ASTRAZENECA-2008UW26916

PATIENT
  Age: 540 Month
  Sex: Male
  Weight: 117.9 kg

DRUGS (11)
  1. AVINZA/KADIAN [Concomitant]
     Dosage: 30-90 MG DISPENSED
     Dates: start: 20050609
  2. XANAX [Concomitant]
     Dosage: 1 MG, 2 MG DISPENSED
     Dates: start: 20060117
  3. SEROQUEL [Suspect]
     Indication: SLEEP DISORDER
     Dosage: 25MG, 100MG
     Route: 048
     Dates: start: 20010101, end: 20060307
  4. SEROQUEL [Suspect]
     Indication: NERVOUSNESS
     Dosage: 25MG, 100MG
     Route: 048
     Dates: start: 20010101, end: 20060307
  5. XANAX [Concomitant]
  6. PREVACID [Concomitant]
     Dates: start: 20051107
  7. SEROQUEL [Suspect]
     Dosage: 25MG, 100MG DISPENSED
     Route: 048
     Dates: start: 20050714
  8. SULINDAC [Concomitant]
     Dates: start: 20051104
  9. BENICAR HC [Concomitant]
     Dosage: 20/12.5 MG
     Dates: start: 20051202
  10. SEROQUEL [Suspect]
     Dosage: 25MG, 100MG DISPENSED
     Route: 048
     Dates: start: 20050714
  11. PROTONIX [Concomitant]
     Dates: start: 20050709

REACTIONS (6)
  - TREMOR [None]
  - EMOTIONAL DISTRESS [None]
  - HYPERTENSION [None]
  - TYPE 2 DIABETES MELLITUS [None]
  - DIABETES MELLITUS INADEQUATE CONTROL [None]
  - PAIN IN EXTREMITY [None]
